FAERS Safety Report 8455532-6 (Version None)
Quarter: 2012Q2

REPORT INFORMATION
  Report Type: 
  Country: None (occurrence: None)
  Receive Date: 20120621
  Receipt Date: 20120615
  Transmission Date: 20120825
  Serious: Yes (Hospitalization)
  Sender: FDA-Public Use
  Company Number: JP-PFIZER INC-2012145621

PATIENT
  Age: 75 Year
  Sex: Female
  Weight: 39 kg

DRUGS (11)
  1. RABEPRAZOLE SODIUM [Concomitant]
     Dosage: UNK
     Route: 048
  2. ONE-ALPHA [Concomitant]
     Dosage: UNK
     Route: 048
  3. CANDESARTAN CILEXETIL [Concomitant]
     Dosage: UNK
     Route: 048
     Dates: end: 20110104
  4. ANPLAG [Concomitant]
     Dosage: UNK
     Route: 048
  5. SILDENAFIL CITRATE [Suspect]
     Indication: PULMONARY HYPERTENSION
     Dosage: 20 MG, 2X/DAY
     Route: 048
     Dates: start: 20100907, end: 20101019
  6. PREDNISOLONE [Concomitant]
     Dosage: UNK
     Route: 048
  7. URSO 250 [Concomitant]
     Dosage: UNK
     Route: 048
  8. PROCYLIN [Concomitant]
     Indication: PULMONARY HYPERTENSION
     Dosage: UNK
     Route: 048
  9. MUCOSTA [Concomitant]
     Dosage: UNK
     Route: 048
  10. LASIX [Concomitant]
     Dosage: UNK
     Route: 048
  11. SILDENAFIL CITRATE [Suspect]
     Indication: COLLAGEN-VASCULAR DISEASE
     Dosage: 20 MG, 3X/DAY
     Route: 048
     Dates: start: 20101020, end: 20101207

REACTIONS (2)
  - PERICARDIAL EFFUSION [None]
  - PLEURAL EFFUSION [None]
